FAERS Safety Report 5794747-2 (Version None)
Quarter: 2008Q2

REPORT INFORMATION
  Report Type: 
  Country: None (occurrence: None)
  Receive Date: 20080630
  Receipt Date: 20080619
  Transmission Date: 20081010
  Serious: Yes (Life-Threatening)
  Sender: FDA-Public Use
  Company Number: FR-WYE-H04729608

PATIENT
  Age: 6 Month
  Sex: Female

DRUGS (1)
  1. CORDARONE [Suspect]
     Indication: ARRHYTHMIA
     Dosage: DOSE UNKNOWN
     Route: 048
     Dates: start: 20080208, end: 20080515

REACTIONS (3)
  - CHRONIC RESPIRATORY FAILURE [None]
  - CONDITION AGGRAVATED [None]
  - LUNG DISORDER [None]
